FAERS Safety Report 20145242 (Version 2)
Quarter: 2022Q2

REPORT INFORMATION
  Report Type: Spontaneous
  Country: US (occurrence: US)
  Receive Date: 20211203
  Receipt Date: 20220506
  Transmission Date: 20220721
  Serious: No
  Sender: FDA-Public Use
  Company Number: US-PFIZER INC-2021605687

PATIENT
  Age: 49 Year
  Sex: Male

DRUGS (2)
  1. XELJANZ XR [Suspect]
     Active Substance: TOFACITINIB CITRATE
     Indication: Rheumatoid arthritis
     Dosage: 11 MG,1X/DAY
     Route: 048
     Dates: start: 20210519, end: 202110
  2. XELJANZ XR [Suspect]
     Active Substance: TOFACITINIB CITRATE
     Indication: Osteoarthritis

REACTIONS (4)
  - Drug ineffective [Unknown]
  - Off label use [Unknown]
  - Depressed mood [Unknown]
  - Discouragement [Unknown]

NARRATIVE: CASE EVENT DATE: 20210501
